FAERS Safety Report 5189766-3 (Version None)
Quarter: 2006Q4

REPORT INFORMATION
  Report Type: 
  Country: None (occurrence: None)
  Receive Date: 20061218
  Receipt Date: 20061206
  Transmission Date: 20070319
  Serious: Yes (Hospitalization, Other)
  Sender: FDA-Public Use
  Company Number: 2006101413

PATIENT
  Sex: Male
  Weight: 103.4201 kg

DRUGS (9)
  1. VIAGRA [Suspect]
     Indication: ERECTILE DYSFUNCTION
     Dosage: 50 MG (50 MG, AS NECESSARY)
     Dates: start: 20000101
  2. WARFARIN SODIUM [Concomitant]
  3. CRESTOR [Concomitant]
  4. TIZANIDINE HCL [Concomitant]
  5. DARVOCET [Concomitant]
  6. CORGARD [Concomitant]
  7. ALL OTHER  THERAPEUTIC PRODUCTS (ALL OTHER THERAPEUTIC PRODUCTS) [Concomitant]
  8. OSCAL (CALCIUM CARBONATE) [Concomitant]
  9. ATENOLOL [Concomitant]

REACTIONS (11)
  - BLINDNESS [None]
  - DRUG INEFFECTIVE [None]
  - ERECTILE DYSFUNCTION [None]
  - GOITRE [None]
  - HEADACHE [None]
  - MALIGNANT SPLENIC NEOPLASM [None]
  - NEOPLASM MALIGNANT [None]
  - PLATELET COUNT DECREASED [None]
  - SPLENOMEGALY [None]
  - THYROID NEOPLASM [None]
  - VISUAL BRIGHTNESS [None]
